FAERS Safety Report 5695292-5 (Version None)
Quarter: 2008Q2

REPORT INFORMATION
  Report Type: 
  Country: None (occurrence: None)
  Receive Date: 20080404
  Receipt Date: 20080327
  Transmission Date: 20081010
  Serious: Yes (Other)
  Sender: FDA-Public Use
  Company Number: US-PFIZER INC-2008027591

PATIENT
  Sex: Female
  Weight: 48 kg

DRUGS (2)
  1. DEPO-MEDROL [Suspect]
     Indication: VESTIBULAR NEURONITIS
     Dosage: DAILY DOSE:80MG
  2. XANAX [Suspect]
     Indication: ANXIETY

REACTIONS (2)
  - ASTHENIA [None]
  - INSOMNIA [None]
